FAERS Safety Report 12232234 (Version 2)
Quarter: 2016Q2

REPORT INFORMATION
  Report Type: Spontaneous
  Country: US (occurrence: US)
  Receive Date: 20160401
  Receipt Date: 20160413
  Transmission Date: 20160815
  Serious: No
  Sender: FDA-Public Use
  Company Number: US-PFIZER INC-2016177387

PATIENT
  Age: 17 Year
  Sex: Male
  Weight: 70.31 kg

DRUGS (7)
  1. LYRICA [Suspect]
     Active Substance: PREGABALIN
     Indication: HEADACHE
     Dosage: 25 MG, UNK
  2. SERTRALINE [Concomitant]
     Active Substance: SERTRALINE HYDROCHLORIDE
     Indication: POST CONCUSSION SYNDROME
     Dosage: 100 MG, DAILY
     Dates: start: 201511
  3. LYRICA [Suspect]
     Active Substance: PREGABALIN
     Indication: MIGRAINE
  4. ZOLOFT [Suspect]
     Active Substance: SERTRALINE HYDROCHLORIDE
     Dosage: 100 MG, UNK
  5. LYRICA [Suspect]
     Active Substance: PREGABALIN
     Indication: NEURALGIA
     Dosage: 100 MG, 1X/DAY
     Dates: start: 20160123, end: 201604
  6. SERTRALINE [Concomitant]
     Active Substance: SERTRALINE HYDROCHLORIDE
     Indication: DEPRESSION
  7. LYRICA [Suspect]
     Active Substance: PREGABALIN
     Indication: POST CONCUSSION SYNDROME

REACTIONS (11)
  - Hyperhidrosis [Not Recovered/Not Resolved]
  - Fatigue [Not Recovered/Not Resolved]
  - Condition aggravated [Unknown]
  - Product use issue [Unknown]
  - Somnolence [Not Recovered/Not Resolved]
  - Personality change [Unknown]
  - Chills [Not Recovered/Not Resolved]
  - Depression [Not Recovered/Not Resolved]
  - Pain [Not Recovered/Not Resolved]
  - Neuralgia [Not Recovered/Not Resolved]
  - Disorientation [Unknown]

NARRATIVE: CASE EVENT DATE: 20160331
